FAERS Safety Report 10186561 (Version 1)
Quarter: 2014Q2

REPORT INFORMATION
  Report Type: Spontaneous
  Country: US (occurrence: US)
  Receive Date: 20140521
  Receipt Date: 20140521
  Transmission Date: 20141212
  Serious: Yes (Hospitalization, Other)
  Sender: FDA-Public Use
  Company Number: US-BAXTER-2014BAX025799

PATIENT
  Age: 48 Year
  Sex: Female
  Weight: 72.64 kg

DRUGS (13)
  1. GAMMAGARD LIQUID [Suspect]
     Indication: SELECTIVE IGG SUBCLASS DEFICIENCY
     Route: 058
     Dates: start: 20140412, end: 20140412
  2. GAMMAGARD LIQUID [Suspect]
     Route: 058
     Dates: start: 20140503, end: 20140503
  3. INTEGIRLIN [Suspect]
     Indication: MYOCARDIAL INFARCTION
     Route: 042
     Dates: start: 20140418
  4. INTEGIRLIN [Suspect]
     Dosage: RESTARTED AT SLOWER RATE
     Route: 042
     Dates: start: 201404
  5. DYCLOPINE [Concomitant]
     Indication: PREMEDICATION
     Dosage: 30 MG (3-10 MG) BEFORE GGL INFUSION
     Route: 048
     Dates: start: 201310
  6. METHOTREXATE [Concomitant]
     Indication: PREMEDICATION
     Dosage: BEFORE GGL INFUSION
     Route: 048
     Dates: start: 201312
  7. ZOFRAN [Concomitant]
     Indication: PREMEDICATION
     Route: 048
     Dates: start: 2010
  8. ZOFRAN [Concomitant]
     Dosage: BEFORE GGL INFUSION
     Route: 048
  9. PHENERGAN [Concomitant]
     Indication: PREMEDICATION
     Route: 048
     Dates: start: 2010
  10. PHENERGAN [Concomitant]
     Dosage: BEFORE GGL INFUSION
     Route: 048
  11. PERCOCET [Concomitant]
     Indication: PREMEDICATION
     Dosage: 5/325 MG
     Route: 048
     Dates: start: 2010
  12. PERCOCET [Concomitant]
     Dosage: 5/325 MG, BEFORE GGL INFUSION (REPEAT AS NEEDED X1)
     Route: 048
  13. ATENOLOL [Concomitant]
     Indication: PRODUCT USED FOR UNKNOWN INDICATION
     Route: 048
     Dates: start: 2010

REACTIONS (4)
  - Myocardial infarction [Recovering/Resolving]
  - Coronary artery thrombosis [Recovering/Resolving]
  - Haemoptysis [Recovered/Resolved]
  - Epistaxis [Recovered/Resolved]
